FAERS Safety Report 9387922 (Version 1)
Quarter: 2013Q3

REPORT INFORMATION
  Report Type: Spontaneous
  Country: US (occurrence: None)
  Receive Date: 20130701
  Receipt Date: 20130701
  Transmission Date: 20140515
  Serious: Yes (Hospitalization, Other)
  Sender: FDA-Public Use
  Company Number: USA/USA/13/0030285

PATIENT
  Age: 28 Year
  Sex: Male

DRUGS (3)
  1. QUETIAPINE FUMARATE [Suspect]
     Indication: PRODUCT USED FOR UNKNOWN INDICATION
  2. AMITRIPTYLINE (AMITRIPTYLINE) [Suspect]
     Indication: PRODUCT USED FOR UNKNOWN INDICATION
     Route: 048
  3. DIAZEPAM (DIAZEPAM) [Suspect]
     Indication: PRODUCT USED FOR UNKNOWN INDICATION
     Route: 048

REACTIONS (25)
  - Coma [None]
  - Electrocardiogram QRS complex prolonged [None]
  - Tachycardia [None]
  - Quadriparesis [None]
  - Respiratory failure [None]
  - Suicide attempt [None]
  - Intentional overdose [None]
  - Expired drug administered [None]
  - Anger [None]
  - Agitation [None]
  - Treatment noncompliance [None]
  - Inappropriate schedule of drug administration [None]
  - Respiratory rate increased [None]
  - Oxygen saturation decreased [None]
  - Mydriasis [None]
  - Hypotonia [None]
  - Areflexia [None]
  - No therapeutic response [None]
  - Electroencephalogram abnormal [None]
  - CSF protein increased [None]
  - Eyelid ptosis [None]
  - Hyperreflexia [None]
  - Clonus [None]
  - Hypoventilation [None]
  - Intentional drug misuse [None]
